FAERS Safety Report 12111445 (Version 2)
Quarter: 2017Q1

REPORT INFORMATION
  Report Type: Report from Study
  Country: US (occurrence: US)
  Receive Date: 20160224
  Receipt Date: 20170216
  Transmission Date: 20170428
  Serious: Yes (Hospitalization)
  Sender: FDA-Public Use
  Company Number: US-ACTELION-A-NJ2015-110981

PATIENT
  Age: 68 Year
  Sex: Female
  Weight: 96.15 kg

DRUGS (2)
  1. TRACLEER [Suspect]
     Active Substance: BOSENTAN
     Indication: PULMONARY HYPERTENSION
     Dosage: 125 MG, BID
     Route: 048
  2. COUMADIN [Concomitant]
     Active Substance: WARFARIN SODIUM

REACTIONS (3)
  - Nasopharyngitis [Unknown]
  - Pulmonary arterial hypertension [Unknown]
  - Chronic obstructive pulmonary disease [Unknown]
